FAERS Safety Report 4551720-X (Version None)
Quarter: 2005Q1

REPORT INFORMATION
  Report Type: 
  Country: None (occurrence: None)
  Receive Date: 20050113
  Receipt Date: 20050105
  Transmission Date: 20050727
  Serious: Yes (Other)
  Sender: FDA-Public Use
  Company Number: DE-BRISTOL-MYERS SQUIBB COMPANY-12819017

PATIENT
  Age: 67 Year
  Sex: Female
  Weight: 78 kg

DRUGS (3)
  1. ENDOXAN [Suspect]
     Indication: BREAST CANCER
     Route: 048
     Dates: start: 20040824, end: 20040824
  2. FLUOROURACIL [Suspect]
     Indication: BREAST CANCER
     Route: 042
     Dates: start: 20040817, end: 20040817
  3. EPIRUBICIN [Suspect]
     Indication: BREAST CANCER
     Route: 042
     Dates: start: 20040817, end: 20040817

REACTIONS (3)
  - FEBRILE INFECTION [None]
  - HERPES SIMPLEX [None]
  - LEUKOPENIA [None]
